FAERS Safety Report 7089106-9 (Version None)
Quarter: 2010Q4

REPORT INFORMATION
  Report Type: 
  Country: None (occurrence: None)
  Receive Date: 20101108
  Receipt Date: 20101028
  Transmission Date: 20110411
  Serious: Yes (Hospitalization)
  Sender: FDA-Public Use
  Company Number: ES-JNJFOC-20101100426

PATIENT
  Age: 41 Year
  Sex: Female

DRUGS (4)
  1. REMICADE [Suspect]
     Indication: CROHN'S DISEASE
     Route: 042
  2. ADALIMUMAB [Suspect]
     Indication: CROHN'S DISEASE
  3. CORTICOSTEROIDS [Concomitant]
  4. MERCAPTOPURINE [Concomitant]

REACTIONS (3)
  - DRUG INEFFECTIVE [None]
  - LUNG INFILTRATION [None]
  - PYREXIA [None]
